FAERS Safety Report 7989002 (Version 2)
Quarter: 2012Q4

REPORT INFORMATION
  Report Type: 
  Country: CA (occurrence: CA)
  Receive Date: 20110613
  Receipt Date: 20121111
  Transmission Date: 20130627
  Serious: Yes (Hospitalization, Other)
  Sender: FDA-Public Use
  Company Number: PHMT2006CA00594

PATIENT
  Sex: Female

DRUGS (8)
  1. SANDOSTATIN LAR [Suspect]
     Indication: ACROMEGALY
     Dosage: 30 mg, every 4 weeks
     Dates: start: 20010108
  2. ADALAT XL [Concomitant]
  3. LEVOTHYROXINE SODIUM [Concomitant]
  4. FLOVENT [Concomitant]
  5. MINIPRESS [Concomitant]
  6. SEREVENT [Concomitant]
  7. SALBUTAMOL SULFATE [Concomitant]
  8. ZESTRIL [Concomitant]

REACTIONS (13)
  - Trigeminal nerve disorder [Unknown]
  - VIIth nerve paralysis [Unknown]
  - Facial pain [Unknown]
  - Weight decreased [Unknown]
  - Pain [Unknown]
  - Intestinal obstruction [Recovering/Resolving]
  - Fatigue [Recovering/Resolving]
  - Headache [Recovering/Resolving]
  - Eye pain [Unknown]
  - Neuralgia [Unknown]
  - Feeling cold [Unknown]
  - Diarrhoea [Unknown]
  - Facial nerve disorder [Unknown]
